FAERS Safety Report 20188793 (Version 2)
Quarter: 2021Q4

REPORT INFORMATION
  Report Type: Report from Study
  Country: AR (occurrence: AR)
  Receive Date: 20211215
  Receipt Date: 20211228
  Transmission Date: 20220303
  Serious: Yes (Hospitalization)
  Sender: FDA-Public Use
  Company Number: AR-NOVARTISPH-NVSC2021AR285363

PATIENT
  Sex: Male

DRUGS (7)
  1. METFORMIN HYDROCHLORIDE\VILDAGLIPTIN [Suspect]
     Active Substance: METFORMIN HYDROCHLORIDE\VILDAGLIPTIN
     Indication: Diabetes mellitus
     Dosage: 2 DOSAGE FORM, QD
     Route: 065
     Dates: start: 2010
  2. METFORMIN HYDROCHLORIDE\VILDAGLIPTIN [Suspect]
     Active Substance: METFORMIN HYDROCHLORIDE\VILDAGLIPTIN
     Dosage: UNK
     Route: 065
  3. SINTROM [Suspect]
     Active Substance: ACENOCOUMAROL
     Indication: Anticoagulant therapy
     Dosage: UNK
     Route: 065
  4. METFORMIN [Concomitant]
     Active Substance: METFORMIN HYDROCHLORIDE
     Indication: Product used for unknown indication
     Dosage: UNK
     Route: 065
  5. REDUPROST [Concomitant]
     Indication: Diuretic therapy
     Dosage: UNK
     Route: 065
  6. REDUPROST [Concomitant]
     Indication: Prostatic disorder
  7. BISOPROLOL FUMARATE [Concomitant]
     Active Substance: BISOPROLOL FUMARATE
     Indication: Cardiac disorder
     Dosage: UNK
     Route: 065

REACTIONS (9)
  - Chest pain [Recovering/Resolving]
  - Blood creatinine increased [Recovered/Resolved]
  - Blood creatine increased [Recovering/Resolving]
  - Chronic kidney disease [Unknown]
  - Vomiting [Recovering/Resolving]
  - Anaemia [Recovering/Resolving]
  - Asthenia [Unknown]
  - Gallbladder disorder [Unknown]
  - Nephropathy toxic [Unknown]

NARRATIVE: CASE EVENT DATE: 20210101
